FAERS Safety Report 8385447-3 (Version None)
Quarter: 2012Q2

REPORT INFORMATION
  Report Type: 
  Country: None (occurrence: None)
  Receive Date: 20120525
  Receipt Date: 20120515
  Transmission Date: 20120825
  Serious: No
  Sender: FDA-Public Use
  Company Number: US-BIOGENIDEC-2012BI017786

PATIENT
  Sex: Female

DRUGS (2)
  1. TYSABRI [Suspect]
     Indication: MULTIPLE SCLEROSIS
     Route: 042
     Dates: start: 20100121, end: 20100121
  2. TYSABRI [Suspect]
     Route: 042
     Dates: start: 20101015, end: 20110901

REACTIONS (5)
  - PAIN [None]
  - INFLAMMATION [None]
  - GENERAL SYMPTOM [None]
  - MUSCULOSKELETAL DISORDER [None]
  - DRUG WITHDRAWAL SYNDROME [None]
